FAERS Safety Report 21143544 (Version 1)
Quarter: 2022Q3

REPORT INFORMATION
  Report Type: Spontaneous
  Country: HR (occurrence: HR)
  Receive Date: 20220728
  Receipt Date: 20220728
  Transmission Date: 20221027
  Serious: Yes (Other)
  Sender: FDA-Public Use
  Company Number: None

PATIENT
  Age: 15 Year
  Sex: Female
  Weight: 77 kg

DRUGS (1)
  1. ZOLOFT [Suspect]
     Active Substance: SERTRALINE HYDROCHLORIDE
     Dosage: 150 MG, 1X/DAY
     Dates: start: 20220627

REACTIONS (3)
  - Diarrhoea [Unknown]
  - Suicide attempt [Unknown]
  - Vomiting [Unknown]

NARRATIVE: CASE EVENT DATE: 20220627
